FAERS Safety Report 4878096-2 (Version None)
Quarter: 2006Q1

REPORT INFORMATION
  Report Type: 
  Country: None (occurrence: None)
  Receive Date: 20060111
  Receipt Date: 20031230
  Transmission Date: 20060701
  Serious: Yes (Hospitalization)
  Sender: FDA-Public Use
  Company Number: DK-BRISTOL-MYERS SQUIBB COMPANY-12466579

PATIENT
  Age: 52 Year
  Sex: Male
  Weight: 85 kg

DRUGS (4)
  1. TAXOL [Suspect]
     Indication: BLADDER CANCER
     Dosage: 1ST DOSE - 23JUL03
     Dates: start: 20031119, end: 20031119
  2. CISPLATIN [Suspect]
     Indication: BLADDER CANCER
     Dosage: 1ST DOSE - 23JUL03
     Dates: start: 20031112, end: 20031112
  3. GEMCITABINE [Suspect]
     Indication: BLADDER CANCER
     Dosage: 1ST DOSE - 23JUL03
     Dates: start: 20031119, end: 20031119
  4. PANTOPRAZOLE SODIUM [Concomitant]
     Dates: start: 20031023

REACTIONS (2)
  - INFECTION [None]
  - THROMBOCYTOPENIA [None]
